FAERS Safety Report 23693599 (Version 1)
Quarter: 2024Q2

REPORT INFORMATION
  Report Type: Spontaneous
  Country: US (occurrence: US)
  Receive Date: 20240401
  Receipt Date: 20240401
  Transmission Date: 20240716
  Serious: No
  Sender: FDA-Public Use
  Company Number: US-SA-SAC20240327000755

PATIENT
  Age: 3 Year
  Sex: Male

DRUGS (1)
  1. DUPIXENT [Suspect]
     Active Substance: DUPILUMAB
     Indication: Dermatitis atopic
     Dosage: 200 MG, Q4W
     Route: 058
     Dates: start: 20240223

REACTIONS (7)
  - Eye discharge [Unknown]
  - Skin swelling [Unknown]
  - Skin induration [Unknown]
  - Skin warm [Unknown]
  - Ocular hyperaemia [Unknown]
  - Myalgia [Unknown]
  - Eye irritation [Unknown]

NARRATIVE: CASE EVENT DATE: 20240101
